FAERS Safety Report 5622094-8 (Version None)
Quarter: 2008Q1

REPORT INFORMATION
  Report Type: 
  Country: None (occurrence: None)
  Receive Date: 20080211
  Receipt Date: 20080131
  Transmission Date: 20080703
  Serious: Yes (Death, Life-Threatening, Other)
  Sender: FDA-Public Use
  Company Number: US-JNJFOC-20071007549

PATIENT
  Sex: Male

DRUGS (17)
  1. REMICADE [Suspect]
     Indication: RHEUMATOID ARTHRITIS
     Route: 042
  2. REMICADE [Suspect]
     Indication: VASCULITIS
     Route: 042
  3. CYTOXAN [Suspect]
  4. CYTOXAN [Suspect]
     Indication: DRUG USE FOR UNKNOWN INDICATION
  5. PLAQUENIL [Suspect]
  6. PLAQUENIL [Suspect]
     Indication: DRUG USE FOR UNKNOWN INDICATION
  7. PREDNISONE TAB [Suspect]
  8. PREDNISONE TAB [Suspect]
     Indication: VASCULITIS
  9. COLCHICINE [Suspect]
     Indication: DRUG USE FOR UNKNOWN INDICATION
  10. FLECAINIDE ACETATE [Concomitant]
  11. HYTRIN [Concomitant]
  12. ATENOLOL [Concomitant]
  13. POTASSIUM CHLORIDE [Concomitant]
  14. LASIX [Concomitant]
  15. ASPIRIN [Concomitant]
     Indication: PROPHYLAXIS
  16. THEO-DUR [Concomitant]
     Indication: CHRONIC OBSTRUCTIVE PULMONARY DISEASE
  17. RESTORIL [Concomitant]
     Indication: SLEEP DISORDER

REACTIONS (2)
  - MULTI-ORGAN FAILURE [None]
  - PROGRESSIVE MULTIFOCAL LEUKOENCEPHALOPATHY [None]
